FAERS Safety Report 12730104 (Version 1)
Quarter: 2016Q3

REPORT INFORMATION
  Report Type: Spontaneous
  Country: HR (occurrence: HR)
  Receive Date: 20160909
  Receipt Date: 20160909
  Transmission Date: 20161109
  Serious: Yes (Life-Threatening, Hospitalization)
  Sender: FDA-Public Use
  Company Number: HR-B.I. PHARMACEUTICALS,INC./RIDGEFIELD-2016-BI-58550HR

PATIENT
  Age: 84 Year
  Sex: Male

DRUGS (4)
  1. FURSEMID [Concomitant]
     Active Substance: FUROSEMIDE
     Indication: CARDIAC FAILURE
     Dosage: STRENGTH: 40-80MG
     Route: 048
     Dates: start: 20141101, end: 20160822
  2. PRADAXA [Suspect]
     Active Substance: DABIGATRAN ETEXILATE MESYLATE
     Indication: ATRIAL FIBRILLATION
     Dosage: 220 MG
     Route: 048
     Dates: start: 20160627, end: 20160821
  3. ALOPURINOL [Concomitant]
     Active Substance: ALLOPURINOL
     Indication: HYPERURICAEMIA
     Route: 048
     Dates: start: 20151106, end: 20160822
  4. CO PERINEVA [Concomitant]
     Indication: HYPERTENSION
     Route: 048
     Dates: start: 20151106, end: 20160822

REACTIONS (5)
  - Shock haemorrhagic [Not Recovered/Not Resolved]
  - Melaena [Not Recovered/Not Resolved]
  - Anaemia [Not Recovered/Not Resolved]
  - Coagulopathy [Not Recovered/Not Resolved]
  - Haematemesis [Not Recovered/Not Resolved]

NARRATIVE: CASE EVENT DATE: 20160822
